FAERS Safety Report 5241741-6 (Version None)
Quarter: 2007Q1

REPORT INFORMATION
  Report Type: 
  Country: None (occurrence: None)
  Receive Date: 20070220
  Receipt Date: 20070209
  Transmission Date: 20070707
  Serious: Yes (Other)
  Sender: FDA-Public Use
  Company Number: US-ELI_LILLY_AND_COMPANY-US200702002183

PATIENT
  Sex: Male

DRUGS (2)
  1. HUMULIN R [Suspect]
     Indication: DIABETES MELLITUS
     Dosage: 16 U, 2/D
     Dates: start: 20020101
  2. HUMULIN R [Suspect]
     Dosage: 16 U, 2/D
     Dates: start: 20020101

REACTIONS (2)
  - HAEMORRHAGE [None]
  - LIVER TRANSPLANT [None]
